FAERS Safety Report 16680450 (Version 2)
Quarter: 2019Q3

REPORT INFORMATION
  Report Type: Spontaneous
  Country: GB (occurrence: GB)
  Receive Date: 20190807
  Receipt Date: 20190812
  Transmission Date: 20191004
  Serious: Yes (Other)
  Sender: FDA-Public Use
  Company Number: PHHY2019GB108873

PATIENT
  Age: 6 Year
  Sex: Female

DRUGS (6)
  1. TRILEPTAL [Suspect]
     Active Substance: OXCARBAZEPINE
     Dosage: 5 ML, BID
     Route: 048
     Dates: start: 20190706, end: 20190709
  2. TRILEPTAL [Suspect]
     Active Substance: OXCARBAZEPINE
     Dosage: 4 ML, BID
     Route: 048
     Dates: start: 20190617
  3. LAMOTRIGINE. [Concomitant]
     Active Substance: LAMOTRIGINE
     Indication: PRODUCT USED FOR UNKNOWN INDICATION
     Dosage: UNK
     Route: 065
     Dates: start: 201707
  4. TRILEPTAL DOSING SYRINGE (DEVICE) [Suspect]
     Active Substance: DEVICE
     Indication: EPILEPSY
     Dosage: UNK
     Route: 048
  5. TRILEPTAL [Suspect]
     Active Substance: OXCARBAZEPINE
     Indication: EPILEPSY
     Dosage: 3 ML, BID
     Route: 048
     Dates: start: 20190502
  6. OXCARBAZEPINE MYLAN [Suspect]
     Active Substance: OXCARBAZEPINE
     Indication: EPILEPSY
     Route: 065
     Dates: start: 20190710

REACTIONS (3)
  - Seizure [Unknown]
  - Incorrect dose administered [Unknown]
  - Syringe issue [Unknown]
